FAERS Safety Report 13295742 (Version 2)
Quarter: 2017Q1

REPORT INFORMATION
  Report Type: Spontaneous
  Country: US (occurrence: US)
  Receive Date: 20170303
  Receipt Date: 20170328
  Transmission Date: 20170428
  Serious: Yes (Hospitalization, Other)
  Sender: FDA-Public Use
  Company Number: US-009507513-1702USA010403

PATIENT
  Sex: Female

DRUGS (10)
  1. MECLIZINE [Concomitant]
     Active Substance: MECLIZINE HYDROCHLORIDE
     Route: 048
  2. BESIVANCE [Concomitant]
     Active Substance: BESIFLOXACIN
  3. SODIUM BICARBONATE. [Concomitant]
     Active Substance: SODIUM BICARBONATE
     Route: 048
  4. ZEPATIER [Suspect]
     Active Substance: ELBASVIR\GRAZOPREVIR
     Indication: CHRONIC HEPATITIS C
     Dosage: TAKE 1 TABLET BY MOUTH DAILY
     Route: 048
     Dates: start: 201608, end: 201611
  5. DUREZOL [Concomitant]
     Active Substance: DIFLUPREDNATE
     Dosage: FORMULATION: EMULSION
  6. ACETAMINOPHEN (+) HYDROCODONE BITARTRATE [Concomitant]
     Active Substance: ACETAMINOPHEN\HYDROCODONE BITARTRATE
     Route: 048
  7. AMLODIPINE [Concomitant]
     Active Substance: AMLODIPINE BESYLATE
  8. BACITRACIN. [Concomitant]
     Active Substance: BACITRACIN
     Dosage: FORMULATION: SUSPENSION
     Route: 047
  9. GLIPIZIDE. [Concomitant]
     Active Substance: GLIPIZIDE
     Route: 048
  10. NEVANAC [Concomitant]
     Active Substance: NEPAFENAC
     Dosage: FORMULATION: SUSPENSION

REACTIONS (1)
  - Knee arthroplasty [Not Recovered/Not Resolved]
